FAERS Safety Report 4736850-1 (Version None)
Quarter: 2005Q3

REPORT INFORMATION
  Report Type: 
  Country: None (occurrence: None)
  Receive Date: 20050805
  Receipt Date: 20050729
  Transmission Date: 20060218
  Serious: Yes (Hospitalization, Other)
  Sender: FDA-Public Use
  Company Number: 2005080277

PATIENT
  Age: 93 Year
  Sex: Male

DRUGS (10)
  1. LIPITOR [Suspect]
     Indication: HYPERCHOLESTEROLAEMIA
     Dosage: ORAL
     Route: 048
     Dates: start: 20041222
  2. NORVASC [Suspect]
     Indication: ILL-DEFINED DISORDER
  3. NITROGLYCERIN [Concomitant]
  4. DYAZIDE [Concomitant]
  5. PREDNISONE [Concomitant]
  6. PLAVIX [Concomitant]
  7. ZANTAC [Concomitant]
  8. SYNTHROID [Concomitant]
  9. ACETYLSALICYLIC ACID SRT [Concomitant]
  10. METOPROLOL [Concomitant]

REACTIONS (1)
  - BRADYCARDIA [None]
